FAERS Safety Report 21872750 (Version 1)
Quarter: 2023Q1

REPORT INFORMATION
  Report Type: Spontaneous
  Country: US (occurrence: US)
  Receive Date: 20230117
  Receipt Date: 20230117
  Transmission Date: 20230418
  Serious: No
  Sender: FDA-Public Use
  Company Number: US-GALDERMA-US2022019431

PATIENT

DRUGS (4)
  1. DIFFERIN GEL [Suspect]
     Active Substance: ADAPALENE
     Indication: Acne
     Dosage: 1 DOSAGE FORM
     Route: 061
  2. ACCUTANE [Concomitant]
     Active Substance: ISOTRETINOIN
     Indication: Product used for unknown indication
     Dosage: 1 DOSAGE FORM
  3. DOXYCYCLINE [DOXYCYCLINE HYCLATE] [Concomitant]
     Indication: Acne
     Dosage: 1 DOSAGE FORM
     Route: 048
  4. TRETINOIN [Concomitant]
     Active Substance: TRETINOIN
     Indication: Acne
     Dosage: 1 DOSAGE FORM
     Route: 061

REACTIONS (1)
  - Drug ineffective [Unknown]
